FAERS Safety Report 6908411-7 (Version None)
Quarter: 2010Q3

REPORT INFORMATION
  Report Type: 
  Country: None (occurrence: None)
  Receive Date: 20100805
  Receipt Date: 20100727
  Transmission Date: 20110219
  Serious: No
  Sender: FDA-Public Use
  Company Number: US-JNJFOC-20100708824

PATIENT
  Sex: Male
  Weight: 74.84 kg

DRUGS (2)
  1. DURAGESIC-100 [Suspect]
     Indication: OSTEOARTHRITIS
     Route: 062
  2. OPANA [Concomitant]
     Indication: PAIN

REACTIONS (1)
  - WRONG TECHNIQUE IN DRUG USAGE PROCESS [None]
